FAERS Safety Report 13587636 (Version 4)
Quarter: 2019Q3

REPORT INFORMATION
  Report Type: Report from Study
  Country: US (occurrence: US)
  Receive Date: 20170526
  Receipt Date: 20190802
  Transmission Date: 20191004
  Serious: Yes (Other)
  Sender: FDA-Public Use
  Company Number: US-JAZZ-2016-US-024742

PATIENT
  Age: 64 Year
  Sex: Male

DRUGS (10)
  1. HYDROCODONE [Concomitant]
     Active Substance: HYDROCODONE
  2. CLONAZEPAM. [Concomitant]
     Active Substance: CLONAZEPAM
  3. ESOMEPRAZOLE MAGNESIUM. [Concomitant]
     Active Substance: ESOMEPRAZOLE MAGNESIUM
  4. BYSTOLIC [Concomitant]
     Active Substance: NEBIVOLOL HYDROCHLORIDE
  5. ALENDRONATE [Suspect]
     Active Substance: ALENDRONATE SODIUM
     Indication: BONE DENSITY ABNORMAL
  6. AMBIEN [Concomitant]
     Active Substance: ZOLPIDEM TARTRATE
  7. XYREM [Suspect]
     Active Substance: SODIUM OXYBATE
     Indication: NARCOLEPSY
     Dosage: 3 G, BID
     Route: 048
     Dates: start: 200903, end: 2009
  8. XYREM [Suspect]
     Active Substance: SODIUM OXYBATE
     Dosage: 4.5 G, BID
     Route: 048
     Dates: start: 200906
  9. AVALIDE [Concomitant]
     Active Substance: HYDROCHLOROTHIAZIDE\IRBESARTAN
  10. CARISOPRODOL. [Concomitant]
     Active Substance: CARISOPRODOL

REACTIONS (7)
  - Osteomyelitis [Unknown]
  - Tooth abscess [Not Recovered/Not Resolved]
  - Stress at work [Unknown]
  - Hypertension [Recovering/Resolving]
  - Spinal operation [Unknown]
  - Dental implantation [Unknown]
  - Exostosis of jaw [Not Recovered/Not Resolved]

NARRATIVE: CASE EVENT DATE: 20190719
